FAERS Safety Report 23038425 (Version 1)
Quarter: 2023Q4

REPORT INFORMATION
  Report Type: Spontaneous
  Country: US (occurrence: US)
  Receive Date: 20231006
  Receipt Date: 20231006
  Transmission Date: 20240109
  Serious: No
  Sender: FDA-Public Use
  Company Number: US-Indivior Limited-INDV-138530-2023

PATIENT
  Age: 40 Year
  Sex: Male

DRUGS (5)
  1. SUBLOCADE [Suspect]
     Active Substance: BUPRENORPHINE
     Indication: Drug dependence
     Dosage: 300 MILLIGRAM, QMO (ABDOMINAL SUBCUTANEOUS INJECTION)
     Route: 058
     Dates: start: 20230228
  2. SUBLOCADE [Suspect]
     Active Substance: BUPRENORPHINE
  3. WELLBUTRIN [Suspect]
     Active Substance: BUPROPION HYDROCHLORIDE
     Indication: Depression
     Dosage: 200 MILLIGRAM, BID (MORNING AND AT 2 PM)
     Route: 048
  4. TRAZODONE [Suspect]
     Active Substance: TRAZODONE HYDROCHLORIDE
     Indication: Anxiety
     Dosage: 100 MILLIGRAM, HS
     Route: 048
  5. LODINE [Suspect]
     Active Substance: ETODOLAC
     Indication: Inflammation
     Dosage: 400 MILLIGRAM, QD
     Route: 048

REACTIONS (3)
  - Logorrhoea [Recovered/Resolved]
  - Anxiety [Recovered/Resolved]
  - Insomnia [Recovered/Resolved]

NARRATIVE: CASE EVENT DATE: 20230310
